FAERS Safety Report 9682029 (Version 30)
Quarter: 2018Q3

REPORT INFORMATION
  Report Type: Report from Study
  Country: BR (occurrence: BR)
  Receive Date: 20131111
  Receipt Date: 20180719
  Transmission Date: 20181010
  Serious: Yes (Hospitalization, Other)
  Sender: FDA-Public Use
  Company Number: PHHY2013BR124582

PATIENT
  Age: 62 Year
  Sex: Female
  Weight: 79 kg

DRUGS (14)
  1. OLCADIL [Concomitant]
     Active Substance: CLOXAZOLAM
     Indication: SLEEP DISORDER
     Dosage: 2 MG, QD
     Route: 048
     Dates: start: 2008
  2. OSCAL [Concomitant]
     Active Substance: CALCIUM CARBONATE
     Indication: PRODUCT USED FOR UNKNOWN INDICATION
     Route: 065
  3. CONCOR [Concomitant]
     Active Substance: BISOPROLOL FUMARATE
     Indication: HYPERTENSION
     Dosage: 2 DF, QD
     Route: 048
  4. ACTONEL [Concomitant]
     Active Substance: RISEDRONATE SODIUM
     Indication: PRODUCT USED FOR UNKNOWN INDICATION
     Dosage: UNK UNK, BID
     Route: 065
  5. TIORFAN [Concomitant]
     Active Substance: RACECADOTRIL
     Indication: DIARRHOEA
     Dosage: 1 DF, PRN
     Route: 048
  6. SANDOSTATIN LAR DEPOT [Suspect]
     Active Substance: OCTREOTIDE ACETATE
     Indication: NEUROENDOCRINE TUMOUR
     Dosage: 30 MG, QMO (EVERY 28 DAYS)
     Route: 030
     Dates: start: 200810
  7. ATENOLOL. [Concomitant]
     Active Substance: ATENOLOL
     Indication: ARRHYTHMIA
     Dosage: 2 DF, QD
     Route: 048
     Dates: end: 20150428
  8. IMOSEC [Concomitant]
     Active Substance: LOPERAMIDE
     Indication: DIARRHOEA
     Dosage: 2 MG, TWICE (UNSPECIFIED)
     Route: 065
     Dates: start: 2008
  9. IMOSEC [Concomitant]
     Active Substance: LOPERAMIDE
     Dosage: 2 DF, QD
     Route: 048
  10. IMOSEC [Concomitant]
     Active Substance: LOPERAMIDE
     Dosage: 1 DF, PRN
     Route: 048
  11. QUESTRAN [Concomitant]
     Active Substance: CHOLESTYRAMINE
     Indication: DIARRHOEA
     Dosage: 1 DF, PRN
     Route: 048
     Dates: start: 2008
  12. ATENOLOL. [Concomitant]
     Active Substance: ATENOLOL
     Indication: BLOOD PRESSURE ABNORMAL
     Dosage: UNK UNK, BID
     Route: 048
  13. ATENOLOL. [Concomitant]
     Active Substance: ATENOLOL
     Indication: HYPERTENSION
     Dosage: 1 DF, QD
     Route: 048
  14. CALCIUM VIT D [Concomitant]
     Active Substance: CALCIUM\CHOLECALCIFEROL
     Indication: PRODUCT USED FOR UNKNOWN INDICATION
     Route: 065

REACTIONS (32)
  - Injection site swelling [Unknown]
  - Diarrhoea [Not Recovered/Not Resolved]
  - Injection site inflammation [Not Recovered/Not Resolved]
  - Musculoskeletal stiffness [Unknown]
  - Blood chromogranin A increased [Unknown]
  - Injection site pain [Recovered/Resolved]
  - Injection site erythema [Not Recovered/Not Resolved]
  - Therapy non-responder [Not Recovered/Not Resolved]
  - Product quality issue [Unknown]
  - Needle issue [Unknown]
  - Wrong technique in product usage process [Unknown]
  - Injection site mass [Recovered/Resolved]
  - Bradycardia [Not Recovered/Not Resolved]
  - Erythema [Not Recovered/Not Resolved]
  - Hot flush [Not Recovered/Not Resolved]
  - Recurrent cancer [Not Recovered/Not Resolved]
  - Osteopenia [Not Recovered/Not Resolved]
  - Malaise [Unknown]
  - Underdose [Unknown]
  - Injection site haemorrhage [Not Recovered/Not Resolved]
  - Weight increased [Unknown]
  - Injection site pain [Unknown]
  - Hyperhidrosis [Not Recovered/Not Resolved]
  - Metastases to liver [Unknown]
  - Injection site pain [Recovered/Resolved]
  - Injection site warmth [Recovering/Resolving]
  - Agitation [Recovered/Resolved]
  - Malignant neoplasm progression [Unknown]
  - Pain [Recovered/Resolved]
  - Feeling hot [Not Recovered/Not Resolved]
  - Dysstasia [Unknown]
  - Asthenia [Unknown]

NARRATIVE: CASE EVENT DATE: 2008
